FAERS Safety Report 20072560 (Version 1)
Quarter: 2021Q4

REPORT INFORMATION
  Report Type: Spontaneous
  Country: CN (occurrence: CN)
  Receive Date: 20211116
  Receipt Date: 20211116
  Transmission Date: 20220303
  Serious: Yes (Death)
  Sender: FDA-Public Use
  Company Number: CN-Blueprint Medicines Corporation-SO-CN-2021-001474

PATIENT
  Age: 55 Year
  Sex: Female

DRUGS (1)
  1. GAVRETO [Suspect]
     Active Substance: PRALSETINIB
     Indication: Non-small cell lung cancer
     Route: 048
     Dates: start: 20210623

REACTIONS (4)
  - Disease progression [Fatal]
  - Bruxism [Unknown]
  - Transaminases increased [Unknown]
  - Hypertension [Unknown]

NARRATIVE: CASE EVENT DATE: 20210815
